FAERS Safety Report 16799794 (Version 2)
Quarter: 2019Q4

REPORT INFORMATION
  Report Type: Spontaneous
  Country: US (occurrence: US)
  Receive Date: 20190912
  Receipt Date: 20191025
  Transmission Date: 20200122
  Serious: Yes (Death, Hospitalization)
  Sender: FDA-Public Use
  Company Number: US-PFIZER INC-2019395977

PATIENT
  Age: 83 Year
  Sex: Male
  Weight: 72.56 kg

DRUGS (1)
  1. SUTENT [Suspect]
     Active Substance: SUNITINIB MALATE
     Indication: METASTATIC NEOPLASM
     Dosage: 37.5 MG, UNK

REACTIONS (4)
  - Off label use [Unknown]
  - Death [Fatal]
  - Ill-defined disorder [Not Recovered/Not Resolved]
  - Product use in unapproved indication [Unknown]
